FAERS Safety Report 4936717-X (Version None)
Quarter: 2006Q1

REPORT INFORMATION
  Report Type: 
  Country: None (occurrence: None)
  Receive Date: 20060302
  Receipt Date: 20060217
  Transmission Date: 20060701
  Serious: Yes (Other)
  Sender: FDA-Public Use
  Company Number: 2006020031

PATIENT
  Age: 36 Year
  Sex: Female

DRUGS (1)
  1. DORAL [Suspect]
     Indication: ILL-DEFINED DISORDER
     Dosage: 15 MG, 1 IN 1 D, ORAL
     Route: 048
     Dates: start: 20040401

REACTIONS (2)
  - OCULOMUCOCUTANEOUS SYNDROME [None]
  - STEVENS-JOHNSON SYNDROME [None]
